FAERS Safety Report 8298570-9 (Version None)
Quarter: 2012Q2

REPORT INFORMATION
  Report Type: 
  Country: None (occurrence: None)
  Receive Date: 20120419
  Receipt Date: 20110920
  Transmission Date: 20120825
  Serious: No
  Sender: FDA-Public Use
  Company Number: US-ABBOTT-11P-163-0856715-00

PATIENT
  Sex: Female
  Weight: 51.756 kg

DRUGS (1)
  1. LUPRON DEPOT-PED [Suspect]
     Indication: PRECOCIOUS PUBERTY
     Dates: start: 20110401

REACTIONS (3)
  - INFECTION [None]
  - MASS [None]
  - HAIR DISORDER [None]
